FAERS Safety Report 9306912 (Version 1)
Quarter: 2013Q1

REPORT INFORMATION
  Report Type: Spontaneous
  Country: US (occurrence: None)
  Receive Date: 20130314
  Receipt Date: 20130314
  Transmission Date: 20140127
  Serious: Yes (Other)
  Sender: FDA-Public Use
  Company Number: 2011SA032344

PATIENT
  Sex: Female

DRUGS (2)
  1. PLAVIX [Suspect]
     Route: 048
     Dates: end: 2011
  2. ASPIRIN [Suspect]

REACTIONS (9)
  - Multiple injuries [None]
  - Transient ischaemic attack [None]
  - Emotional disorder [None]
  - Tricuspid valve incompetence [None]
  - Ischaemic stroke [None]
  - Myocardial infarction [None]
  - Fear of disease [None]
  - Atrial septal defect [None]
  - Migraine [None]
